FAERS Safety Report 8847386 (Version 3)
Quarter: 2012Q4

REPORT INFORMATION
  Report Type: Report from Study
  Country: GB (occurrence: GB)
  Receive Date: 20121018
  Receipt Date: 20121126
  Transmission Date: 20130627
  Serious: Yes (Death)
  Sender: FDA-Public Use
  Company Number: GB-ABBOTT-12P-167-0996493-00

PATIENT
  Age: 64 Year
  Sex: Female
  Weight: 77 kg

DRUGS (1)
  1. HUMIRA [Suspect]
     Indication: RHEUMATOID ARTHRITIS
     Route: 058
     Dates: start: 20030506

REACTIONS (6)
  - Diabetes mellitus [Fatal]
  - Rheumatoid arthritis [Fatal]
  - Pneumonia pneumococcal [Fatal]
  - Wound [Unknown]
  - Skin ulcer [Unknown]
  - Infection [Unknown]
